FAERS Safety Report 5591108-6 (Version None)
Quarter: 2008Q1

REPORT INFORMATION
  Report Type: 
  Country: None (occurrence: None)
  Receive Date: 20080111
  Receipt Date: 20080111
  Transmission Date: 20080703
  Serious: Yes (Death, Hospitalization)
  Sender: FDA-Public Use
  Company Number: None

PATIENT
  Sex: Female
  Weight: 71 kg

DRUGS (4)
  1. ERBITUX [Suspect]
     Dosage: 1212 MG
     Dates: end: 20071108
  2. CAMPTOSAR [Suspect]
     Dosage: 338 MG
     Dates: end: 20071101
  3. LEUCOVORIN CALCIUM [Suspect]
     Dosage: 752 MG
     Dates: end: 20071101
  4. FLUOROURACIL [Suspect]
     Dosage: 5252 MG
     Dates: end: 20071102

REACTIONS (1)
  - INTESTINAL OBSTRUCTION [None]
